FAERS Safety Report 19800969 (Version 2)
Quarter: 2021Q3

REPORT INFORMATION
  Report Type: Spontaneous
  Country: US (occurrence: US)
  Receive Date: 20210907
  Receipt Date: 20210928
  Transmission Date: 20211014
  Serious: Yes (Hospitalization)
  Sender: FDA-Public Use
  Company Number: US-CELGENEUS-USA-20210900276

PATIENT
  Age: 70 Year
  Sex: Female

DRUGS (19)
  1. MIRALAX (MACROGOL 3350) [Concomitant]
     Indication: PRODUCT USED FOR UNKNOWN INDICATION
     Route: 065
  2. VENETOCLAX. [Suspect]
     Active Substance: VENETOCLAX
     Indication: ACUTE MYELOID LEUKAEMIA
     Dosage: 70 MILLIGRAM
     Route: 048
     Dates: start: 20210702
  3. AZACITIDINE. [Suspect]
     Active Substance: AZACITIDINE
     Indication: ACUTE MYELOID LEUKAEMIA
     Dosage: 75 MILLIGRAM/SQ. METER
     Route: 041
     Dates: start: 20210702, end: 20210708
  4. PEPCID [Concomitant]
     Active Substance: FAMOTIDINE
     Indication: PRODUCT USED FOR UNKNOWN INDICATION
     Route: 065
  5. ROBITUSSIN?DM (DEXTROMETHORPHAN HYDROBROMIDE, GUAIFENESIN) [Concomitant]
     Indication: PRODUCT USED FOR UNKNOWN INDICATION
     Route: 065
  6. TUCKS (GLYCEROL, HEMAMELLA VIRGINIENE) [Concomitant]
     Indication: PRODUCT USED FOR UNKNOWN INDICATION
     Route: 065
  7. COMPAZINE (PROCHLORPERAZINE EDISYLATE) [Concomitant]
     Active Substance: PROCHLORPERAZINE EDISYLATE
     Indication: PRODUCT USED FOR UNKNOWN INDICATION
     Route: 065
  8. MAXIPIME (CEFEPIME HYDROCHLORIDE) [Concomitant]
     Indication: PRODUCT USED FOR UNKNOWN INDICATION
     Route: 065
  9. ANUSOL NOS [Concomitant]
     Active Substance: BALSAM PERU\BENZYL BENZOATE\BISMUTH HYDROXIDE\BISMUTH SUBGALLATE\HYDROCORTISONE ACETATE\ZINC OXIDE
     Indication: PRODUCT USED FOR UNKNOWN INDICATION
     Route: 065
  10. SYNTHROID [Concomitant]
     Active Substance: LEVOTHYROXINE SODIUM
     Indication: PRODUCT USED FOR UNKNOWN INDICATION
     Route: 065
  11. SENOKOT?S (DOCUSATE SODIUM, SENNA ALEXANDRINA) [Concomitant]
     Indication: PRODUCT USED FOR UNKNOWN INDICATION
     Route: 065
  12. ULLTRAM (PARACETAMOL, TRAMADOL HYDROCHLORIDE) [Concomitant]
     Indication: PRODUCT USED FOR UNKNOWN INDICATION
     Route: 065
  13. VALTREX (VALACYCLOVIR HYDROCHLORIDE) [Concomitant]
     Indication: PRODUCT USED FOR UNKNOWN INDICATION
     Route: 065
  14. ULTRA(SUIFACETAMIDE SODIUM) [Concomitant]
     Indication: PRODUCT USED FOR UNKNOWN INDICATION
     Route: 065
  15. DULCOLAX (BISACODYL) [Concomitant]
     Active Substance: BISACODYL
     Indication: PRODUCT USED FOR UNKNOWN INDICATION
     Route: 065
  16. CANCIDAS (CASPOFUNGIN ACETATE) [Concomitant]
     Indication: PRODUCT USED FOR UNKNOWN INDICATION
     Route: 065
  17. GILTERITINIB [Suspect]
     Active Substance: GILTERITINIB
     Indication: ACUTE MYELOID LEUKAEMIA
     Dosage: 80 MILLIGRAM
     Route: 048
     Dates: start: 20210702
  18. HUMALOG [Concomitant]
     Active Substance: INSULIN LISPRO
     Indication: PRODUCT USED FOR UNKNOWN INDICATION
     Route: 065
  19. DUONEB (IPRATROPIUM BROMIDE, SALBUTAMOL SILFATE) [Concomitant]
     Indication: PRODUCT USED FOR UNKNOWN INDICATION
     Route: 065

REACTIONS (1)
  - Hypoxia [Unknown]

NARRATIVE: CASE EVENT DATE: 20210712
